FAERS Safety Report 21585817 (Version 1)
Quarter: 2022Q4

REPORT INFORMATION
  Report Type: Spontaneous
  Country: GB (occurrence: GB)
  Receive Date: 20221111
  Receipt Date: 20221111
  Transmission Date: 20230112
  Serious: Yes (Other)
  Sender: FDA-Public Use
  Company Number: None

PATIENT
  Sex: Female
  Weight: 70 kg

DRUGS (2)
  1. CITALOPRAM HYDROBROMIDE [Suspect]
     Active Substance: CITALOPRAM HYDROBROMIDE
     Indication: Product used for unknown indication
     Dates: start: 20221031
  2. CITALOPRAM [Concomitant]
     Active Substance: CITALOPRAM HYDROBROMIDE
     Dosage: ONE TO BE TAKEN EACH DAY
     Dates: start: 20221021

REACTIONS (5)
  - Inappropriate affect [Unknown]
  - Euphoric mood [Recovering/Resolving]
  - Muscle spasms [Unknown]
  - Muscle twitching [Unknown]
  - Palpitations [Unknown]

NARRATIVE: CASE EVENT DATE: 20221031
